FAERS Safety Report 25300085 (Version 1)
Quarter: 2025Q2

REPORT INFORMATION
  Report Type: Spontaneous
  Country: SY (occurrence: SY)
  Receive Date: 20250512
  Receipt Date: 20250512
  Transmission Date: 20250717
  Serious: Yes (Other)
  Sender: Haleon PLC
  Company Number: SY-HALEON-2241688

PATIENT
  Age: 40 Year
  Sex: Male

DRUGS (1)
  1. FLUTICASONE FUROATE [Suspect]
     Active Substance: FLUTICASONE FUROATE
     Indication: Rhinitis allergic

REACTIONS (7)
  - Cushing^s syndrome [Recovered/Resolved]
  - Weight increased [Recovered/Resolved]
  - Hypertrichosis [Unknown]
  - Cushingoid [Recovered/Resolved]
  - Skin striae [Recovered/Resolved]
  - Hypothalamic pituitary adrenal axis suppression [Recovered/Resolved]
  - Glucocorticoid deficiency [Unknown]
